FAERS Safety Report 24856012 (Version 1)
Quarter: 2025Q1

REPORT INFORMATION
  Report Type: Spontaneous
  Country: US (occurrence: None)
  Receive Date: 20250116
  Receipt Date: 20250116
  Transmission Date: 20250409
  Serious: Yes (Death, Disabling)
  Sender: FDA-CTU
  Company Number: None

PATIENT
  Age: 78 Year
  Sex: Female
  Weight: 134.26 kg

DRUGS (1)
  1. MOUNJARO [Suspect]
     Active Substance: TIRZEPATIDE
     Dosage: OTHER QUANTITY : 4 SINGLE DOSE PENS INJECTION;?FREQUENCY : WEEKLY;?
     Dates: start: 20231011, end: 20240211

REACTIONS (2)
  - Diarrhoea [None]
  - General physical health deterioration [None]

NARRATIVE: CASE EVENT DATE: 20240201
